FAERS Safety Report 23611553 (Version 4)
Quarter: 2024Q2

REPORT INFORMATION
  Report Type: Spontaneous
  Country: JP (occurrence: None)
  Receive Date: 20240308
  Receipt Date: 20240412
  Transmission Date: 20240716
  Serious: Yes (Death, Disabling)
  Sender: FDA-Public Use
  Company Number: 2024A051830

PATIENT
  Age: 61 Year
  Sex: Male
  Weight: 81 kg

DRUGS (10)
  1. LOKELMA [Suspect]
     Active Substance: SODIUM ZIRCONIUM CYCLOSILICATE
     Indication: Hyperkalaemia
     Route: 048
     Dates: start: 20240226, end: 20240227
  2. DAPTOMYCIN [Concomitant]
     Active Substance: DAPTOMYCIN
     Dosage: DOSE UNKNOWN
  3. FEBUXOSTAT [Concomitant]
     Active Substance: FEBUXOSTAT
     Dosage: DOSE UNKNOWN
  4. NU-LOTAN [Concomitant]
     Active Substance: LOSARTAN POTASSIUM
     Indication: Cardiac failure chronic
     Dates: start: 20240130, end: 20240305
  5. DIGOXIN [Concomitant]
     Active Substance: DIGOXIN
     Indication: Cardiac failure chronic
     Dates: start: 20240130, end: 20240305
  6. SAMSCA [Concomitant]
     Active Substance: TOLVAPTAN
     Indication: Cardiac failure chronic
     Dates: start: 20240130, end: 20240305
  7. TAKECAB OD [Concomitant]
     Indication: Prophylaxis against gastrointestinal ulcer
     Dates: start: 20240130, end: 20240305
  8. BISOPROLOL [Concomitant]
     Active Substance: BISOPROLOL\BISOPROLOL FUMARATE
     Indication: Cardiac failure chronic
     Route: 062
     Dates: start: 20240130, end: 20240305
  9. FENTANYL [Concomitant]
     Active Substance: FENTANYL\FENTANYL CITRATE
     Dosage: DOSE UNKNOWN
     Route: 062
  10. DACARBAZINE [Concomitant]
     Active Substance: DACARBAZINE
     Dosage: DOSE UNKNOWN
     Dates: start: 202311

REACTIONS (6)
  - Malignant melanoma [Fatal]
  - Depressed level of consciousness [Fatal]
  - X-ray gastrointestinal tract abnormal [Not Recovered/Not Resolved]
  - Incorrect route of product administration [Unknown]
  - Haematochezia [Not Recovered/Not Resolved]
  - Gastric hypomotility [Not Recovered/Not Resolved]

NARRATIVE: CASE EVENT DATE: 20240201
